FAERS Safety Report 10192394 (Version 1)
Quarter: 2014Q2

REPORT INFORMATION
  Report Type: Spontaneous
  Country: US (occurrence: US)
  Receive Date: 20140523
  Receipt Date: 20140523
  Transmission Date: 20141212
  Serious: No
  Sender: FDA-Public Use
  Company Number: US-PFIZER INC-2014138421

PATIENT
  Age: 50 Year
  Sex: Male
  Weight: 97.51 kg

DRUGS (2)
  1. NEURONTIN [Suspect]
     Indication: DIABETIC NEUROPATHY
     Dosage: TWO 300 MG TABLETS IN THE MORNING, TWO 300 MG TABLETS AT LUNCH AND THREE 300MG TABLETS AT NIGHT
     Route: 048
     Dates: start: 201309
  2. METFORMIN [Concomitant]
     Indication: DIABETES MELLITUS
     Dosage: UNK
     Dates: start: 201309

REACTIONS (3)
  - Drug ineffective for unapproved indication [Unknown]
  - Glycosylated haemoglobin increased [Unknown]
  - Blood glucose abnormal [Unknown]
